FAERS Safety Report 11977147 (Version 1)
Quarter: 2016Q1

REPORT INFORMATION
  Report Type: Spontaneous
  Country: US (occurrence: US)
  Receive Date: 20160129
  Receipt Date: 20160129
  Transmission Date: 20160526
  Serious: Yes (Hospitalization, Other)
  Sender: FDA-Public Use
  Company Number: US-DRREDDYS-USA/USA/16/0065496

PATIENT
  Age: 70 Year
  Sex: Female

DRUGS (4)
  1. CYTARABINE. [Concomitant]
     Active Substance: CYTARABINE
     Indication: ACUTE MYELOID LEUKAEMIA
     Route: 065
  2. DECITABINE. [Suspect]
     Active Substance: DECITABINE
     Indication: ACUTE MYELOID LEUKAEMIA
     Route: 042
  3. SORAFENIB [Suspect]
     Active Substance: SORAFENIB
     Indication: ACUTE MYELOID LEUKAEMIA
     Route: 048
  4. DAUNORUBICIN [Concomitant]
     Active Substance: DAUNORUBICIN
     Indication: ACUTE MYELOID LEUKAEMIA
     Route: 065

REACTIONS (9)
  - Clostridium difficile infection [Recovering/Resolving]
  - Neutropenic sepsis [Recovering/Resolving]
  - Stenotrophomonas infection [Recovering/Resolving]
  - Pneumonia [Recovering/Resolving]
  - Cellulitis [Unknown]
  - Leukaemia recurrent [Unknown]
  - Colitis [Recovering/Resolving]
  - Performance status decreased [Unknown]
  - Febrile neutropenia [Unknown]
